FAERS Safety Report 24759481 (Version 1)
Quarter: 2024Q4

REPORT INFORMATION
  Report Type: Spontaneous
  Country: US (occurrence: US)
  Receive Date: 20241220
  Receipt Date: 20241220
  Transmission Date: 20250114
  Serious: No
  Sender: STALLERGENES
  Company Number: US-STALCOR-2024-AER-02738

PATIENT
  Age: 46 Year
  Sex: Male

DRUGS (3)
  1. CANDIDA ALBICANS [Suspect]
     Active Substance: CANDIDA ALBICANS
     Indication: Skin papilloma
     Route: 026
     Dates: start: 20241014
  2. CANDIDA ALBICANS [Suspect]
     Active Substance: CANDIDA ALBICANS
     Route: 026
     Dates: start: 20240923
  3. CANDIN [Suspect]
     Active Substance: CANDIDA ALBICANS
     Indication: Skin papilloma
     Dates: start: 20240923

REACTIONS (5)
  - Off label use [Recovered/Resolved]
  - Wrong product administered [Recovered/Resolved]
  - Skin reaction [Recovered/Resolved]
  - Erythema [Recovered/Resolved]
  - Inflammation [Recovered/Resolved]

NARRATIVE: CASE EVENT DATE: 20240923
